FAERS Safety Report 7428438-9 (Version None)
Quarter: 2011Q2

REPORT INFORMATION
  Report Type: 
  Country: None (occurrence: None)
  Receive Date: 20110421
  Receipt Date: 20110408
  Transmission Date: 20111010
  Serious: Yes (Other)
  Sender: FDA-Public Use
  Company Number: PHFR2011GB02205

PATIENT
  Sex: Female

DRUGS (4)
  1. FOLIC ACID [Concomitant]
     Dosage: 5 MG, UNK
  2. TEGRETOL [Suspect]
     Indication: EPILEPSY
     Dosage: FOLLOW UP INFORMATION RECEIVED FROM A CONSUMER ON 08 APR 2011: THE PATIENT WAS STILL CONTINUED ON TE
  3. CLOBAZAM [Concomitant]
     Dosage: 10 MG, UNK
  4. LEVOTHYROXINE SODIUM [Concomitant]
     Dosage: 125 MG, UNK

REACTIONS (5)
  - HYPOTHYROIDISM [None]
  - OSTEOARTHRITIS [None]
  - OSTEOPOROSIS [None]
  - VERTIGO [None]
  - DIZZINESS [None]
